FAERS Safety Report 13803303 (Version 3)
Quarter: 2022Q1

REPORT INFORMATION
  Report Type: Report from Study
  Country: US (occurrence: US)
  Receive Date: 20170728
  Receipt Date: 20220331
  Transmission Date: 20220424
  Serious: Yes (Other)
  Sender: FDA-Public Use
  Company Number: US-PCYC-2017PHC14134

PATIENT
  Age: 78 Year
  Sex: Male

DRUGS (3)
  1. FLUCONAZOLE [Suspect]
     Active Substance: FLUCONAZOLE
     Dosage: UNK
     Route: 065
  2. IMBRUVICA [Suspect]
     Active Substance: IBRUTINIB
     Indication: Follicular lymphoma
     Dosage: 560 MG, 1X/DAY
     Route: 048
     Dates: start: 20170418, end: 2017
  3. IMBRUVICA [Suspect]
     Active Substance: IBRUTINIB
     Dosage: 140 MG, 1X/DAY
     Route: 048
     Dates: start: 2017

REACTIONS (3)
  - Haemorrhage [Unknown]
  - Faeces discoloured [Unknown]
  - Increased tendency to bruise [Unknown]
